FAERS Safety Report 9879031 (Version 2)
Quarter: 2014Q1

REPORT INFORMATION
  Report Type: Spontaneous
  Country: US (occurrence: US)
  Receive Date: 20140206
  Receipt Date: 20140206
  Transmission Date: 20141002
  Serious: No
  Sender: FDA-Public Use
  Company Number: US-ALLERGAN-1313504US

PATIENT
  Age: 58 Year
  Sex: Female

DRUGS (5)
  1. BOTOX [Suspect]
     Indication: MYALGIA
     Dosage: 25 UNITS, SINGLE
     Dates: start: 20130720, end: 20130720
  2. BOTOX [Suspect]
     Indication: MUSCLE SPASMS
  3. BOTOX [Suspect]
     Indication: SKIN WRINKLING
  4. BOTOX [Suspect]
     Indication: SKIN WRINKLING
  5. BOTOX [Suspect]
     Indication: HEADACHE

REACTIONS (4)
  - Wrong technique in drug usage process [Unknown]
  - Wrong technique in drug usage process [Unknown]
  - Off label use [Unknown]
  - Therapeutic response decreased [Unknown]
